FAERS Safety Report 4428643-X (Version None)
Quarter: 2004Q3

REPORT INFORMATION
  Report Type: 
  Country: None (occurrence: None)
  Receive Date: 20040818
  Receipt Date: 20030804
  Transmission Date: 20050211
  Serious: No
  Sender: FDA-Public Use
  Company Number: US-BRISTOL-MYERS SQUIBB COMPANY-12344842

PATIENT
  Age: 77 Year
  Sex: Male
  Weight: 109 kg

DRUGS (7)
  1. TEQUIN [Suspect]
     Indication: INFECTION PROPHYLAXIS
     Route: 048
     Dates: start: 20030724
  2. METFORMIN HCL + GLIPIZIDE [Concomitant]
     Indication: DIABETES MELLITUS
     Dosage: INCREASED TO 3 TIMES PER DAY.
  3. COUMADIN [Concomitant]
  4. COREG [Concomitant]
  5. LISINOPRIL [Concomitant]
  6. CELEBREX [Concomitant]
  7. FUROSEMIDE [Concomitant]

REACTIONS (2)
  - BLOOD GLUCOSE INCREASED [None]
  - SOMNOLENCE [None]
